FAERS Safety Report 20076263 (Version 6)
Quarter: 2021Q4

REPORT INFORMATION
  Report Type: Report from Study
  Country: CN (occurrence: CN)
  Receive Date: 20211116
  Receipt Date: 20211221
  Transmission Date: 20220303
  Serious: Yes (Hospitalization)
  Sender: FDA-Public Use
  Company Number: CN-NOVARTISPH-NVSC2021CN252905

PATIENT
  Age: 10 Year
  Sex: Female
  Weight: 44.1 kg

DRUGS (6)
  1. FINGOLIMOD [Suspect]
     Active Substance: FINGOLIMOD
     Indication: Relapsing multiple sclerosis
     Dosage: UNK
     Route: 048
     Dates: start: 20210521
  2. IDEBENONE [Concomitant]
     Active Substance: IDEBENONE
     Indication: Metabolic disorder
     Dosage: UNK
     Route: 065
     Dates: start: 20210201
  3. UBIDECARENONE [Concomitant]
     Active Substance: UBIDECARENONE
     Indication: Metabolic disorder
     Dosage: UNK
     Route: 065
     Dates: start: 20200616
  4. VITAMIN D [Concomitant]
     Active Substance: VITAMIN D NOS
     Indication: General physical condition
     Dosage: DROPS
     Route: 065
     Dates: start: 20200616
  5. CREATINE [Concomitant]
     Active Substance: CREATINE
     Indication: Metabolic disorder
     Dosage: UNK
     Route: 065
     Dates: start: 20211009, end: 20211013
  6. OXCARBAZEPINE [Concomitant]
     Active Substance: OXCARBAZEPINE
     Indication: Epilepsy
     Dosage: UNK
     Route: 065
     Dates: start: 20210915

REACTIONS (3)
  - Febrile infection [Recovered/Resolved]
  - Epilepsy [Recovered/Resolved]
  - Tonsillitis [Recovered/Resolved]

NARRATIVE: CASE EVENT DATE: 20211102
